FAERS Safety Report 4336849-3 (Version None)
Quarter: 2004Q1

REPORT INFORMATION
  Report Type: 
  Country: None (occurrence: None)
  Receive Date: 20040329
  Receipt Date: 20040112
  Transmission Date: 20041129
  Serious: No
  Sender: FDA-Public Use
  Company Number: USA040156317

PATIENT
  Age: 19 Year
  Sex: Male
  Weight: 61 kg

DRUGS (3)
  1. STRATTERA [Suspect]
     Indication: ATTENTION DEFICIT/HYPERACTIVITY DISORDER
     Dosage: 80 MG/AT BEDTIME
  2. ZOLOFT [Concomitant]
  3. CONCERTA [Concomitant]

REACTIONS (2)
  - FATIGUE [None]
  - MOOD SWINGS [None]
